FAERS Safety Report 6724492-8 (Version None)
Quarter: 2010Q2

REPORT INFORMATION
  Report Type: 
  Country: None (occurrence: None)
  Receive Date: 20100513
  Receipt Date: 20100507
  Transmission Date: 20101027
  Serious: Yes (Death, Hospitalization)
  Sender: FDA-Public Use
  Company Number: US-ELI_LILLY_AND_COMPANY-US201002002836

PATIENT
  Sex: Male

DRUGS (3)
  1. GEMZAR [Suspect]
     Indication: PANCREATIC CARCINOMA
     Dosage: UNK, UNK
     Dates: start: 20100201
  2. BENADRYL [Concomitant]
     Dates: start: 20100101
  3. RANITIDINE [Concomitant]
     Dosage: UNK, AS NEEDED

REACTIONS (10)
  - CARDIAC FAILURE [None]
  - CHEST PAIN [None]
  - DISSEMINATED INTRAVASCULAR COAGULATION [None]
  - HEARING IMPAIRED [None]
  - HEPATIC FAILURE [None]
  - HICCUPS [None]
  - LUNG DISORDER [None]
  - MALIGNANT NEOPLASM PROGRESSION [None]
  - PRODUCTIVE COUGH [None]
  - RENAL FAILURE [None]
